FAERS Safety Report 4786523-4 (Version None)
Quarter: 2005Q4

REPORT INFORMATION
  Report Type: 
  Country: None (occurrence: None)
  Receive Date: 20051003
  Receipt Date: 20050923
  Transmission Date: 20060501
  Serious: Yes (Hospitalization)
  Sender: FDA-Public Use
  Company Number: US-ABBOTT-05P-163-0311856-00

PATIENT
  Age: 61 Year
  Sex: Female

DRUGS (5)
  1. DEPAKENE [Suspect]
     Indication: DRUG USE FOR UNKNOWN INDICATION
     Route: 048
     Dates: start: 20041215, end: 20050404
  2. TEMOZOLOMIDE [Interacting]
     Indication: GLIOBLASTOMA
     Route: 048
     Dates: start: 20050113, end: 20050228
  3. BACTRIM [Interacting]
     Indication: PROPHYLAXIS
     Route: 048
     Dates: start: 20050113, end: 20050325
  4. PREDNISONE [Concomitant]
     Indication: DRUG USE FOR UNKNOWN INDICATION
     Route: 048
     Dates: start: 20041229
  5. VALACYCLOVIR HCL [Concomitant]
     Indication: PROPHYLAXIS
     Route: 048
     Dates: start: 20050113, end: 20050323

REACTIONS (2)
  - BONE MARROW FAILURE [None]
  - DRUG INTERACTION [None]
